FAERS Safety Report 8113173-4 (Version None)
Quarter: 2012Q1

REPORT INFORMATION
  Report Type: 
  Country: None (occurrence: None)
  Receive Date: 20120203
  Receipt Date: 20120123
  Transmission Date: 20120608
  Serious: Yes (Hospitalization)
  Sender: FDA-Public Use
  Company Number: PHEH2012US001997

PATIENT
  Sex: Female

DRUGS (2)
  1. DIOVAN HCT [Suspect]
     Dosage: 160/25 MG, UNK
  2. DIOVAN [Suspect]
     Dosage: UNK

REACTIONS (2)
  - FULL BLOOD COUNT DECREASED [None]
  - BLOOD SODIUM DECREASED [None]
